FAERS Safety Report 8545531-8 (Version None)
Quarter: 2012Q3

REPORT INFORMATION
  Report Type: 
  Country: None (occurrence: None)
  Receive Date: 20120727
  Receipt Date: 20111130
  Transmission Date: 20120928
  Serious: No
  Sender: FDA-Public Use
  Company Number: US-ASTRAZENECA-2011SE64611

PATIENT
  Age: 25 Year
  Sex: Male
  Weight: 169.2 kg

DRUGS (10)
  1. LEXAPRO [Concomitant]
  2. SEROQUEL [Suspect]
     Indication: BIPOLAR DISORDER
     Route: 048
  3. SEROQUEL [Suspect]
     Route: 048
  4. TYLENOL [Concomitant]
     Indication: BACK PAIN
  5. SEROQUEL [Suspect]
     Indication: SLEEP DISORDER
     Route: 048
  6. GENERIC CELEXA [Concomitant]
     Indication: DEPRESSION
  7. SEROQUEL [Suspect]
     Route: 048
     Dates: start: 20050101
  8. SEROQUEL [Suspect]
     Route: 048
     Dates: start: 20050101
  9. LITHIUM CARBONATE [Concomitant]
  10. SEROQUEL [Suspect]
     Route: 048

REACTIONS (15)
  - AGGRESSION [None]
  - ATTENTION DEFICIT/HYPERACTIVITY DISORDER [None]
  - BACK PAIN [None]
  - INSOMNIA [None]
  - FAECAL INCONTINENCE [None]
  - IMPAIRED WORK ABILITY [None]
  - VOMITING [None]
  - DEPRESSION [None]
  - INCORRECT DOSE ADMINISTERED [None]
  - WITHDRAWAL SYNDROME [None]
  - ANXIETY [None]
  - DIARRHOEA [None]
  - OFF LABEL USE [None]
  - DRUG DOSE OMISSION [None]
  - MEMORY IMPAIRMENT [None]
